FAERS Safety Report 9566213 (Version 1)
Quarter: 2013Q3

REPORT INFORMATION
  Report Type: Spontaneous
  Country: US (occurrence: US)
  Receive Date: 20130930
  Receipt Date: 20130930
  Transmission Date: 20140515
  Serious: No
  Sender: FDA-Public Use
  Company Number: US-ASTRAZENECA-2013SE69482

PATIENT
  Age: 58 Year
  Sex: Female

DRUGS (9)
  1. BRILINTA [Suspect]
     Indication: ELECTROCARDIOGRAM ST SEGMENT ELEVATION
     Route: 048
     Dates: start: 20130909
  2. BRILINTA [Suspect]
     Indication: ACUTE MYOCARDIAL INFARCTION
     Route: 048
     Dates: start: 20130909
  3. BRILINTA [Suspect]
     Indication: MYOCARDIAL INFARCTION
     Route: 048
     Dates: start: 20130909
  4. BRILINTA [Suspect]
     Indication: ELECTROCARDIOGRAM ST SEGMENT ELEVATION
     Route: 048
  5. BRILINTA [Suspect]
     Indication: ACUTE MYOCARDIAL INFARCTION
     Route: 048
  6. BRILINTA [Suspect]
     Indication: MYOCARDIAL INFARCTION
     Route: 048
  7. SOLU MEDROL [Concomitant]
     Indication: CONTRAST MEDIA REACTION
  8. PREDNISONE [Concomitant]
     Indication: RASH
  9. PLAVIX [Concomitant]

REACTIONS (2)
  - Feeling abnormal [Unknown]
  - Rash [Recovering/Resolving]
